FAERS Safety Report 23260703 (Version 2)
Quarter: 2024Q1

REPORT INFORMATION
  Report Type: Spontaneous
  Country: JP (occurrence: JP)
  Receive Date: 20231205
  Receipt Date: 20240112
  Transmission Date: 20240410
  Serious: Yes (Hospitalization, Other)
  Sender: FDA-Public Use
  Company Number: JP-MSD-2311JPN004044J

PATIENT
  Age: 4 Decade
  Sex: Female

DRUGS (1)
  1. KEYTRUDA [Suspect]
     Active Substance: PEMBROLIZUMAB
     Indication: Malignant hydatidiform mole
     Dosage: UNK
     Route: 065

REACTIONS (2)
  - Immune-mediated arthritis [Unknown]
  - Acute hepatic failure [Recovering/Resolving]
